FAERS Safety Report 10303349 (Version 2)
Quarter: 2014Q3

REPORT INFORMATION
  Report Type: Spontaneous
  Country: US (occurrence: US)
  Receive Date: 20140714
  Receipt Date: 20140714
  Transmission Date: 20150326
  Serious: Yes (Hospitalization, Disabling, Other)
  Sender: FDA-Public Use
  Company Number: US-009507513-2010SP005483

PATIENT
  Sex: Female
  Weight: 51.71 kg

DRUGS (8)
  1. TYLENOL [Concomitant]
     Active Substance: ACETAMINOPHEN
     Indication: HEADACHE
     Dosage: 500 MG, UNK
     Dates: start: 200810
  2. RELPAX [Concomitant]
     Active Substance: ELETRIPTAN HYDROBROMIDE
     Dates: start: 200809
  3. ADVAIR HFA [Concomitant]
     Active Substance: FLUTICASONE PROPIONATE\SALMETEROL XINAFOATE
     Dates: start: 200809
  4. FLUTICASONE PROPIONATE. [Concomitant]
     Active Substance: FLUTICASONE PROPIONATE
     Dates: start: 200809
  5. NUVARING [Suspect]
     Active Substance: ETHINYL ESTRADIOL\ETONOGESTREL
     Indication: PRODUCT USED FOR UNKNOWN INDICATION
     Route: 067
     Dates: start: 2008, end: 200811
  6. AVELOX [Suspect]
     Active Substance: MOXIFLOXACIN HYDROCHLORIDE
     Indication: PRODUCT USED FOR UNKNOWN INDICATION
  7. LOVENOX [Suspect]
     Active Substance: ENOXAPARIN SODIUM
     Indication: PULMONARY EMBOLISM
     Dosage: UNK DF, BID
     Route: 062
     Dates: start: 2008, end: 2009
  8. COUMADIN [Suspect]
     Active Substance: WARFARIN SODIUM
     Indication: PRODUCT USED FOR UNKNOWN INDICATION

REACTIONS (21)
  - Pulmonary embolism [Unknown]
  - Sinusitis [Not Recovered/Not Resolved]
  - Pulmonary infarction [Unknown]
  - Hypokalaemia [Recovering/Resolving]
  - Pneumonia [Unknown]
  - Temporomandibular joint syndrome [Unknown]
  - Weight decreased [Recovering/Resolving]
  - Epistaxis [Unknown]
  - Bronchospasm [Unknown]
  - Depression [Unknown]
  - Bronchitis [Not Recovered/Not Resolved]
  - Haemoptysis [Unknown]
  - Panic attack [Unknown]
  - Abdominal discomfort [Not Recovered/Not Resolved]
  - Asthma [Unknown]
  - Muscle spasms [Recovering/Resolving]
  - Pleurisy [Unknown]
  - Cervical dysplasia [Unknown]
  - Injection site reaction [Unknown]
  - Myalgia [Unknown]
  - Feeling jittery [Unknown]

NARRATIVE: CASE EVENT DATE: 2008
